FAERS Safety Report 7394147-8 (Version None)
Quarter: 2011Q1

REPORT INFORMATION
  Report Type: 
  Country: None (occurrence: None)
  Receive Date: 20110325
  Receipt Date: 20110311
  Transmission Date: 20110831
  Serious: Yes (Other)
  Sender: FDA-Public Use
  Company Number: 2010-3952

PATIENT
  Age: 50 Year
  Sex: Female

DRUGS (5)
  1. MULTIPLE UNSPECIFIED MEDICATIONS(ALL OTHER THERAPEUTIC PRODUCTS) [Concomitant]
  2. DYSPORT [Suspect]
     Indication: TORTICOLLIS
     Dosage: 1000 UNITS (1000 UNITS,SINGLE CYCLE),INTRAMUSCULAR
     Route: 030
     Dates: start: 20100504, end: 20100504
  3. DYSPORT [Suspect]
     Indication: SALIVARY HYPERSECRETION
     Dosage: 1000 UNITS (1000 UNITS,SINGLE CYCLE),INTRAMUSCULAR
     Route: 030
     Dates: start: 20100504, end: 20100504
  4. DYSPORT [Suspect]
     Indication: OFF LABEL USE
     Dosage: 1000 UNITS (1000 UNITS,SINGLE CYCLE),INTRAMUSCULAR
     Route: 030
     Dates: start: 20100504, end: 20100504
  5. DYSPORT [Suspect]
     Indication: FACIAL SPASM
     Dosage: 1000 UNITS (1000 UNITS,SINGLE CYCLE),INTRAMUSCULAR
     Route: 030
     Dates: start: 20100504, end: 20100504

REACTIONS (4)
  - OFF LABEL USE [None]
  - CONDITION AGGRAVATED [None]
  - PRODUCT QUALITY ISSUE [None]
  - DYSPHAGIA [None]
